FAERS Safety Report 9917507 (Version 1)
Quarter: 2014Q1

REPORT INFORMATION
  Report Type: Report from Study
  Country: DE (occurrence: DE)
  Receive Date: 20140221
  Receipt Date: 20140221
  Transmission Date: 20141002
  Serious: Yes (Hospitalization)
  Sender: FDA-Public Use
  Company Number: DE-JNJFOC-20131110578

PATIENT
  Age: 70 Year
  Sex: Female
  Weight: 71 kg

DRUGS (14)
  1. XARELTO [Suspect]
     Indication: ATRIAL FIBRILLATION
     Route: 048
     Dates: start: 20130702
  2. XARELTO [Suspect]
     Indication: ATRIAL FIBRILLATION
     Route: 048
     Dates: start: 20130920
  3. XARELTO [Suspect]
     Indication: CEREBROVASCULAR ACCIDENT PROPHYLAXIS
     Route: 048
     Dates: start: 20130702
  4. XARELTO [Suspect]
     Indication: CEREBROVASCULAR ACCIDENT PROPHYLAXIS
     Route: 048
     Dates: start: 20130920
  5. CONCOR [Concomitant]
     Route: 065
     Dates: start: 200510
  6. LORZAAR [Concomitant]
     Route: 065
     Dates: start: 201102, end: 20131118
  7. DIGITOXIN [Concomitant]
     Route: 065
     Dates: start: 20130622, end: 20130627
  8. SIFROL [Concomitant]
     Route: 065
     Dates: start: 201306
  9. DETRUSITOL RETARD [Concomitant]
     Route: 065
     Dates: start: 201306, end: 20131118
  10. LIVIELLA [Concomitant]
     Route: 065
     Dates: start: 201102, end: 20131118
  11. TAMBOCOR [Concomitant]
     Route: 065
     Dates: start: 20130916
  12. SEROQUEL [Concomitant]
     Route: 065
     Dates: start: 20130916
  13. SIMVASTATIN [Concomitant]
     Route: 065
     Dates: start: 20130916
  14. PANTOZOL [Concomitant]
     Route: 065
     Dates: start: 20130916, end: 20131118

REACTIONS (4)
  - Vascular pseudoaneurysm [Recovered/Resolved]
  - Atrial tachycardia [Recovered/Resolved]
  - Haemorrhagic transformation stroke [Recovered/Resolved]
  - Ischaemic stroke [Recovered/Resolved]
